FAERS Safety Report 24449595 (Version 1)
Quarter: 2024Q4

REPORT INFORMATION
  Report Type: Other
  Country: FR (occurrence: FR)
  Receive Date: 20241017
  Receipt Date: 20241017
  Transmission Date: 20250115
  Serious: Yes (Hospitalization)
  Sender: ZYDUS PHARM
  Company Number: None

PATIENT

DRUGS (2)
  1. TRAMADOL [Suspect]
     Active Substance: TRAMADOL
     Indication: Abdominal pain
     Dosage: 200 MILLIGRAM, QD
     Route: 048
     Dates: start: 20240726, end: 20240726
  2. PRAZEPAM [Suspect]
     Active Substance: PRAZEPAM
     Indication: Abdominal pain
     Dosage: 40 MILLIGRAM, QD
     Route: 048
     Dates: start: 20240726, end: 20240726

REACTIONS (1)
  - Coma [Not Recovered/Not Resolved]

NARRATIVE: CASE EVENT DATE: 20240726
